FAERS Safety Report 9789681 (Version 1)
Quarter: 2013Q4

REPORT INFORMATION
  Report Type: Spontaneous
  Country: US (occurrence: US)
  Receive Date: 20131231
  Receipt Date: 20131231
  Transmission Date: 20140711
  Serious: Yes (Other)
  Sender: FDA-Public Use
  Company Number: US-AMGEN-USASP2013091231

PATIENT
  Age: 51 Year
  Sex: Female
  Weight: 112.2 kg

DRUGS (6)
  1. ENBREL [Suspect]
     Indication: PRODUCT USED FOR UNKNOWN INDICATION
     Dosage: 50 MG, QWK
     Route: 058
  2. LITHIUM CARBONATE [Concomitant]
     Dosage: 300 MG, UNK
  3. SEROQUEL [Concomitant]
     Dosage: 400 MG, UNK
  4. NOVOLOG [Concomitant]
     Dosage: 100/ML
  5. SYNTHROID [Concomitant]
     Dosage: 25 MUG, UNK
  6. METHOTREXATE [Concomitant]
     Dosage: UNK

REACTIONS (4)
  - Gallbladder operation [Unknown]
  - Biopsy liver [Unknown]
  - Hepatic enzyme increased [Unknown]
  - Rheumatoid arthritis [Unknown]
